FAERS Safety Report 9348467 (Version 2)
Quarter: 2013Q2

REPORT INFORMATION
  Report Type: Spontaneous
  Country: US (occurrence: US)
  Receive Date: 20130614
  Receipt Date: 20130619
  Transmission Date: 20140414
  Serious: Yes (Death, Other)
  Sender: FDA-Public Use
  Company Number: US-ASTELLAS-2013US006181

PATIENT
  Sex: Female

DRUGS (2)
  1. TARCEVA [Suspect]
     Indication: LUNG CARCINOMA CELL TYPE UNSPECIFIED STAGE 0
     Dosage: 25 MG, UID/QD
     Route: 065
     Dates: start: 20121130
  2. TARCEVA [Suspect]
     Dosage: 150 MG, 1 IN 3 D
     Route: 065
     Dates: start: 201305, end: 20130604

REACTIONS (4)
  - Incorrect dose administered [Unknown]
  - Aspiration pleural cavity [Unknown]
  - Cardiac arrest [Fatal]
  - Procedural hypotension [Fatal]
